FAERS Safety Report 10190489 (Version 2)
Quarter: 2017Q2

REPORT INFORMATION
  Report Type: Spontaneous
  Country: US (occurrence: US)
  Receive Date: 20140522
  Receipt Date: 20170523
  Transmission Date: 20170829
  Serious: Yes (Hospitalization)
  Sender: FDA-Public Use
  Company Number: US-SA-2013SA104505

PATIENT
  Age: 64 Year
  Sex: Male
  Weight: 74.4 kg

DRUGS (16)
  1. FLUOROURACIL. [Suspect]
     Active Substance: FLUOROURACIL
     Indication: COLORECTAL CANCER METASTATIC
     Dosage: 1 IN 2 WEEKS?INFUSION
     Route: 042
     Dates: start: 20131023, end: 20131023
  2. CALCIUM FOLINATE [Suspect]
     Active Substance: LEUCOVORIN CALCIUM
     Indication: COLORECTAL CANCER METASTATIC
     Dosage: FORM: LIQUID?FREQUENCY: 1 IN 2 WEEK
     Route: 042
     Dates: start: 20130925, end: 20130925
  3. FLUOROURACIL. [Suspect]
     Active Substance: FLUOROURACIL
     Indication: COLORECTAL CANCER METASTATIC
     Dosage: 1 IN 2 WEEKS?INFUSION
     Route: 041
     Dates: start: 20130925, end: 20130925
  4. IRINOTECAN HYDROCHLORIDE. [Suspect]
     Active Substance: IRINOTECAN HYDROCHLORIDE
     Indication: COLORECTAL CANCER METASTATIC
     Dosage: 1 IN 2 WEEK?FORM: LIQUID
     Route: 042
     Dates: start: 20130925, end: 20130925
  5. IRINOTECAN HYDROCHLORIDE. [Suspect]
     Active Substance: IRINOTECAN HYDROCHLORIDE
     Indication: COLORECTAL CANCER METASTATIC
     Dosage: 1 IN 2 WEEK?FORM: LIQUID
     Route: 042
     Dates: start: 20131023, end: 20131120
  6. OXALIPLATIN. [Suspect]
     Active Substance: OXALIPLATIN
     Indication: COLORECTAL CANCER METASTATIC
     Dosage: 1 IN 2 WEEKS?FORM: LIQUID
     Route: 042
     Dates: start: 20131023, end: 20131025
  7. CALCIUM FOLINATE [Suspect]
     Active Substance: LEUCOVORIN CALCIUM
     Indication: COLORECTAL CANCER METASTATIC
     Dosage: FORM: LIQUID?FREQUENCY: 1 IN 2 WEEK
     Route: 042
     Dates: start: 20131023, end: 20131023
  8. CALCIUM FOLINATE [Suspect]
     Active Substance: LEUCOVORIN CALCIUM
     Indication: COLORECTAL CANCER METASTATIC
     Dosage: FORM: LIQUID
     Route: 042
     Dates: start: 20131120
  9. BEVACIZUMAB [Suspect]
     Active Substance: BEVACIZUMAB
     Indication: COLON CANCER
     Dosage: 1 IN 2 WEEK
     Route: 042
     Dates: start: 20130925, end: 20130925
  10. LEUCOVORIN. [Concomitant]
     Active Substance: LEUCOVORIN
     Indication: COLORECTAL CANCER METASTATIC
     Dosage: TWO WEEKLY
     Route: 042
     Dates: start: 20130925
  11. LEUCOVORIN. [Concomitant]
     Active Substance: LEUCOVORIN
     Indication: COLORECTAL CANCER METASTATIC
     Dosage: 1 IN 2 WEEKS
     Route: 042
     Dates: start: 20130925, end: 20130925
  12. OXALIPLATIN. [Suspect]
     Active Substance: OXALIPLATIN
     Indication: COLORECTAL CANCER METASTATIC
     Dosage: FORM : LIQUID, 1 IN 2 WEEK
     Route: 042
     Dates: start: 20131120
  13. FLUOROURACIL. [Suspect]
     Active Substance: FLUOROURACIL
     Indication: COLORECTAL CANCER METASTATIC
     Route: 042
     Dates: start: 20131120
  14. OXALIPLATIN. [Suspect]
     Active Substance: OXALIPLATIN
     Indication: COLORECTAL CANCER METASTATIC
     Dosage: 1 IN 2 WEEKS?FORM: LIQUID
     Route: 042
     Dates: start: 20130925, end: 20130925
  15. BEVACIZUMAB [Suspect]
     Active Substance: BEVACIZUMAB
     Indication: COLON CANCER
     Dosage: 1 IN 2 WEEK
     Route: 042
     Dates: start: 20131120
  16. BEVACIZUMAB [Suspect]
     Active Substance: BEVACIZUMAB
     Indication: COLON CANCER
     Dosage: 1 IN 2 WEEK
     Route: 042
     Dates: start: 20131023, end: 20131023

REACTIONS (2)
  - Abdominal pain [Recovered/Resolved]
  - Hypokalaemia [Recovered/Resolved]

NARRATIVE: CASE EVENT DATE: 20131005
